FAERS Safety Report 8338349-2 (Version None)
Quarter: 2012Q2

REPORT INFORMATION
  Report Type: 
  Country: None (occurrence: None)
  Receive Date: 20120504
  Receipt Date: 20120424
  Transmission Date: 20120825
  Serious: Yes (Hospitalization)
  Sender: FDA-Public Use
  Company Number: US-CELGENEUS-163-21880-12042380

PATIENT
  Sex: Male
  Weight: 96.3 kg

DRUGS (27)
  1. SODIUM CHLORIDE [Concomitant]
     Dosage: 1000 MILLILITER
     Route: 041
     Dates: start: 20120419, end: 20120419
  2. PEPCID [Concomitant]
     Dosage: 20 MILLIGRAM
     Route: 041
  3. CEFEPIME [Concomitant]
     Dosage: 2 GRAM
     Route: 041
     Dates: start: 20120420
  4. DESOXIMETASONE [Concomitant]
     Dosage: .25 PERCENT
     Route: 061
  5. ACYCLOVIR [Concomitant]
     Dosage: 2
     Route: 048
     Dates: start: 20120419
  6. DOCUSATE [Concomitant]
     Dosage: 100 MILLIGRAM
     Route: 048
     Dates: start: 20120419
  7. SAW PALMETTO [Concomitant]
     Dosage: 1 TABLET
     Route: 048
  8. LEVOTHYROXINE SODIUM [Concomitant]
     Dosage: 100 MICROGRAM
     Route: 048
  9. GUAIFENESIN [Concomitant]
     Dosage: 200 MILLIGRAM
     Route: 048
     Dates: start: 20120419
  10. ZOMETA [Concomitant]
     Route: 048
  11. SODIUM CHLORIDE [Concomitant]
     Dosage: 1000 MILLILITER
     Route: 041
     Dates: start: 20120419, end: 20120420
  12. SENNA-MINT WAF [Concomitant]
     Dosage: 8.6 MILLIGRAM
     Route: 048
     Dates: start: 20120419
  13. REVLIMID [Suspect]
     Indication: MULTIPLE MYELOMA
     Dosage: 25 MILLIGRAM
     Route: 048
     Dates: start: 20120419, end: 20120419
  14. OXYGEN [Concomitant]
     Dosage: 2 LITERS
     Route: 041
     Dates: start: 20120419
  15. ATORVASTATIN CALCIUM [Concomitant]
     Dosage: 10 MILLIGRAM
     Route: 048
     Dates: start: 20120419
  16. PROCHLORPERAZINE [Concomitant]
     Dosage: 10 MILLIGRAM
     Route: 048
     Dates: start: 20120419
  17. BENADRYL [Concomitant]
     Dosage: 25 MILLIGRAM
     Route: 041
  18. IPH2101 [Suspect]
     Indication: MULTIPLE MYELOMA
     Dosage: 1 MILLIGRAM/KILOGRAM
     Route: 041
     Dates: start: 20120419, end: 20120419
  19. CALCIUM CITRATE +D [Concomitant]
     Dosage: 2 TABLET
     Route: 048
  20. LOVAZA [Concomitant]
     Dosage: 2000 UNITS
     Route: 048
  21. ZOLPIDEM [Concomitant]
     Dosage: 5-10MG
     Route: 048
     Dates: start: 20120419
  22. CETIRIZINE [Concomitant]
     Dosage: 10 MILLIGRAM
     Route: 048
  23. CHOLECALCIFEROL [Concomitant]
     Dosage: 2000 UNITS
     Route: 048
  24. MULTIPLE VITAMIN [Concomitant]
     Dosage: 1 TABLET
     Route: 048
  25. WARFARIN SODIUM [Concomitant]
     Dosage: 1 MILLIGRAM
     Route: 048
     Dates: start: 20120419
  26. DIPHENHYDRAMINE HCL [Concomitant]
     Dosage: 25 MILLIGRAM
     Route: 041
     Dates: start: 20120419
  27. SIMETHICONE [Concomitant]
     Dosage: 30 MILLILITER
     Route: 048
     Dates: start: 20120419

REACTIONS (1)
  - INFUSION RELATED REACTION [None]
